FAERS Safety Report 24119291 (Version 1)
Quarter: 2024Q3

REPORT INFORMATION
  Report Type: Other
  Country: PL (occurrence: PL)
  Receive Date: 20240722
  Receipt Date: 20240722
  Transmission Date: 20241016
  Serious: Yes (Other)
  Sender: ASTELLAS
  Company Number: None

PATIENT
  Age: 79 Year
  Sex: Female

DRUGS (1)
  1. ERLOTINIB [Suspect]
     Active Substance: ERLOTINIB
     Indication: Lung neoplasm malignant
     Route: 048
     Dates: start: 20190416

REACTIONS (6)
  - Gastrointestinal motility disorder [Unknown]
  - Dry skin [Unknown]
  - Onychomycosis [Unknown]
  - Skin fissures [Unknown]
  - Vomiting [Unknown]
  - Asthenia [Unknown]
